FAERS Safety Report 17225924 (Version 1)
Quarter: 2020Q1

REPORT INFORMATION
  Report Type: Spontaneous
  Country: FR (occurrence: FR)
  Receive Date: 20200102
  Receipt Date: 20200102
  Transmission Date: 20200409
  Serious: Yes (Other)
  Sender: FDA-Public Use
  Company Number: FR-ABBVIE-20K-056-3216960-00

PATIENT
  Age: 13 Year
  Sex: Male

DRUGS (5)
  1. PROFENID [Suspect]
     Active Substance: KETOPROFEN
     Indication: PAIN
     Dosage: UNSPECIFIED
     Route: 042
     Dates: start: 20160626, end: 20160626
  2. SUFENTANIL MYLAN [Suspect]
     Active Substance: SUFENTANIL
     Indication: INDUCTION OF ANAESTHESIA
     Dosage: UNSPECIFIED
     Route: 042
     Dates: start: 20160626, end: 20160626
  3. PARACETAMOL B BRAUN [Suspect]
     Active Substance: ACETAMINOPHEN
     Indication: PAIN
     Dosage: UNSPECIFIED
     Route: 042
     Dates: start: 20160626, end: 20160626
  4. LEVOBUPIVACAINE BASE [Suspect]
     Active Substance: LEVOBUPIVACAINE
     Indication: INDUCTION OF ANAESTHESIA
     Dosage: UNSPECIFIED
     Route: 042
     Dates: start: 20160626, end: 20160626
  5. PROPOFOL LIPURO [Suspect]
     Active Substance: PROPOFOL
     Indication: INDUCTION OF ANAESTHESIA
     Dosage: UNSPECIFIED
     Route: 042
     Dates: start: 20160626, end: 20160626

REACTIONS (1)
  - Urticaria [Recovered/Resolved]

NARRATIVE: CASE EVENT DATE: 20160626
